FAERS Safety Report 18997475 (Version 5)
Quarter: 2022Q1

REPORT INFORMATION
  Report Type: Report from Study
  Country: GB (occurrence: GB)
  Receive Date: 20210311
  Receipt Date: 20220322
  Transmission Date: 20220423
  Serious: Yes (Death, Hospitalization, Other)
  Sender: FDA-Public Use
  Company Number: None

PATIENT
  Age: 49 Year
  Sex: Female

DRUGS (26)
  1. DOCETAXEL [Suspect]
     Active Substance: DOCETAXEL
     Indication: Breast cancer metastatic
     Dosage: 132 MG, TIW (LOADING DOSE)
     Route: 042
     Dates: start: 20151022, end: 20151022
  2. LETROZOLE [Suspect]
     Active Substance: LETROZOLE
     Indication: Breast cancer metastatic
     Dosage: 2.5 MG, QD
     Route: 048
     Dates: start: 20160308, end: 20161123
  3. TRASTUZUMAB [Suspect]
     Active Substance: TRASTUZUMAB
     Indication: Breast cancer metastatic
     Dosage: 525 MG, TIW (LOADING DOSE)
     Route: 042
     Dates: start: 20151023, end: 20151023
  4. ADO-TRASTUZUMAB EMTANSINE [Suspect]
     Active Substance: ADO-TRASTUZUMAB EMTANSINE
     Indication: Breast cancer metastatic
     Route: 042
     Dates: start: 20161201
  5. PERTUZUMAB [Suspect]
     Active Substance: PERTUZUMAB
     Indication: Breast cancer metastatic
     Dosage: 840 MG, TIW (LOADING DOSE)
     Route: 042
     Dates: start: 20151023
  6. CALCIUM CARBONATE [Concomitant]
     Active Substance: CALCIUM CARBONATE
     Dates: start: 20151231, end: 20170919
  7. CHLORAMPHENICOL [Concomitant]
     Active Substance: CHLORAMPHENICOL
     Dates: start: 20170918, end: 20170920
  8. CHLORPHENIRAMINE [Concomitant]
     Active Substance: CHLORPHENIRAMINE
     Indication: Prophylaxis
     Route: 042
     Dates: start: 20151022, end: 20160222
  9. CLOTRIMAZOLE [Concomitant]
     Active Substance: CLOTRIMAZOLE
     Dates: start: 20170918, end: 20170920
  10. DEXAMETHASONE [Concomitant]
     Active Substance: DEXAMETHASONE
     Dosage: 8 MG, 3X/DAY (0.33D)
     Route: 048
     Dates: start: 20170803, end: 20170809
  11. DOMPERIDONE [Concomitant]
     Active Substance: DOMPERIDONE
     Dosage: 10 MG, 2X/DAY (0.5DAY)
     Dates: start: 20170810, end: 20170919
  12. FILGRASTIM [Concomitant]
     Active Substance: FILGRASTIM
  13. GLYCOPYRRONIUM [Concomitant]
     Active Substance: GLYCOPYRRONIUM
     Dosage: 400 UG
     Route: 058
     Dates: start: 20170919, end: 20170920
  14. HALOPERIDOL [Concomitant]
     Active Substance: HALOPERIDOL
     Dates: start: 20170919, end: 20170920
  15. HYDROCORTISONE [Concomitant]
     Active Substance: HYDROCORTISONE
     Indication: Prophylaxis
     Dosage: 100 MG,0.33
     Route: 042
     Dates: start: 20151022, end: 20160222
  16. LANSOPRAZOLE [Concomitant]
     Active Substance: LANSOPRAZOLE
     Indication: Prophylaxis
     Route: 048
     Dates: start: 20170728, end: 20170905
  17. MICONAZOLE [Concomitant]
     Active Substance: MICONAZOLE
     Route: 048
     Dates: start: 20170918, end: 20170920
  18. MIDAZOLAM [Concomitant]
     Active Substance: MIDAZOLAM
     Route: 058
     Dates: start: 20170918, end: 20170920
  19. ACETAMINOPHEN\BUCLIZINE HYDROCHLORIDE\CODEINE [Concomitant]
     Active Substance: ACETAMINOPHEN\BUCLIZINE HYDROCHLORIDE\CODEINE
     Dosage: PRN (AS NEEDED)
     Route: 048
     Dates: start: 2017
  20. MORPHINE SULFATE [Concomitant]
     Active Substance: MORPHINE SULFATE
     Route: 048
     Dates: start: 20170918, end: 20170920
  21. NYSTATIN [Concomitant]
     Active Substance: NYSTATIN
     Route: 048
     Dates: start: 20170904, end: 20170919
  22. ONDANSETRON [Concomitant]
     Active Substance: ONDANSETRON
     Route: 048
     Dates: start: 20170809, end: 20170812
  23. TRIMETHOPRIM [Concomitant]
     Active Substance: TRIMETHOPRIM
     Dates: start: 20170915, end: 20170919
  24. ZOLEDRONIC ACID [Concomitant]
     Active Substance: ZOLEDRONIC ACID
     Dosage: 4 MG, QMO
     Dates: start: 20151022, end: 20170713
  25. ZOPICLONE [Concomitant]
     Active Substance: ZOPICLONE
     Dates: start: 20170825, end: 20170919
  26. CALCIUM\CHOLECALCIFEROL [Concomitant]
     Active Substance: CALCIUM\CHOLECALCIFEROL
     Indication: Hypocalcaemia
     Route: 048
     Dates: start: 20151231, end: 20170919

REACTIONS (9)
  - Urinary tract infection [Recovered/Resolved]
  - Neuropathy peripheral [Recovered/Resolved]
  - Nausea [Recovered/Resolved]
  - Conjunctivitis [Recovered/Resolved]
  - Vulvovaginal candidiasis [Recovered/Resolved]
  - Oral candidiasis [Recovered/Resolved]
  - Insomnia [Recovered/Resolved]
  - Hydronephrosis [Recovered/Resolved]
  - Rectal haemorrhage [Fatal]

NARRATIVE: CASE EVENT DATE: 20161109
